FAERS Safety Report 18822714 (Version 1)
Quarter: 2021Q1

REPORT INFORMATION
  Report Type: Spontaneous
  Country: US (occurrence: US)
  Receive Date: 20210202
  Receipt Date: 20210202
  Transmission Date: 20210419
  Serious: Yes (Other)
  Sender: FDA-Public Use
  Company Number: NVSC2021US011922

PATIENT
  Sex: Male
  Weight: 88 kg

DRUGS (12)
  1. XTANDI [Suspect]
     Active Substance: ENZALUTAMIDE
     Dosage: 160 MG, QD
     Route: 048
     Dates: start: 20200619
  2. SYNJARDY [Concomitant]
     Active Substance: EMPAGLIFLOZIN\METFORMIN HYDROCHLORIDE
     Indication: PRODUCT USED FOR UNKNOWN INDICATION
     Dosage: UNK
     Route: 065
  3. VITAMIN D3 [Concomitant]
     Active Substance: CHOLECALCIFEROL
     Indication: PRODUCT USED FOR UNKNOWN INDICATION
     Dosage: UNK
     Route: 065
  4. TAMSULOSIN [Concomitant]
     Active Substance: TAMSULOSIN
     Indication: PRODUCT USED FOR UNKNOWN INDICATION
     Dosage: UNK
     Route: 065
  5. DEXAMETHASONE. [Suspect]
     Active Substance: DEXAMETHASONE
     Indication: PRODUCT USED FOR UNKNOWN INDICATION
     Dosage: UNK
     Route: 065
  6. XTANDI [Suspect]
     Active Substance: ENZALUTAMIDE
     Indication: PROSTATE CANCER
     Dosage: 160 MG, QD
     Route: 048
     Dates: start: 20200619
  7. IRBESARTAN AND HYDROCHLOROTHIAZIDE [Concomitant]
     Active Substance: HYDROCHLOROTHIAZIDE\IRBESARTAN
     Indication: PRODUCT USED FOR UNKNOWN INDICATION
     Dosage: UNK
     Route: 065
  8. LEUPRORELIN [Suspect]
     Active Substance: LEUPROLIDE ACETATE
     Indication: PRODUCT USED FOR UNKNOWN INDICATION
     Dosage: UNK
     Route: 065
  9. XTANDI [Suspect]
     Active Substance: ENZALUTAMIDE
     Dosage: 160 MG, QD
     Route: 048
     Dates: start: 20200619
  10. ALEVE [Concomitant]
     Active Substance: NAPROXEN SODIUM
     Indication: PRODUCT USED FOR UNKNOWN INDICATION
     Dosage: UNK
     Route: 065
  11. LYNPARZA [Concomitant]
     Active Substance: OLAPARIB
     Indication: PRODUCT USED FOR UNKNOWN INDICATION
     Dosage: UNK
     Route: 065
  12. MIRALAX [Concomitant]
     Active Substance: POLYETHYLENE GLYCOL 3350
     Indication: PRODUCT USED FOR UNKNOWN INDICATION
     Dosage: UNK
     Route: 065

REACTIONS (26)
  - Musculoskeletal stiffness [Unknown]
  - Amnesia [Unknown]
  - Night sweats [Unknown]
  - Urethral pain [Unknown]
  - Blood glucose abnormal [Unknown]
  - Drug ineffective [Unknown]
  - Joint stiffness [Unknown]
  - Memory impairment [Unknown]
  - Hypoaesthesia [Unknown]
  - Muscular weakness [Unknown]
  - Arthralgia [Unknown]
  - Nail discolouration [Unknown]
  - Urinary retention [Unknown]
  - Psychiatric symptom [Unknown]
  - Nerve injury [Unknown]
  - Hyperhidrosis [Recovering/Resolving]
  - Fatigue [Recovering/Resolving]
  - Back pain [Unknown]
  - Prostatic specific antigen increased [Unknown]
  - Hot flush [Unknown]
  - Weight increased [Unknown]
  - Testicular pain [Recovering/Resolving]
  - Paraesthesia [Unknown]
  - Nocturia [Unknown]
  - Pain [Unknown]
  - Neuropathy peripheral [Not Recovered/Not Resolved]
